FAERS Safety Report 6391525-0 (Version None)
Quarter: 2009Q4

REPORT INFORMATION
  Report Type: 
  Country: None (occurrence: None)
  Receive Date: 20091006
  Receipt Date: 20091006
  Transmission Date: 20100525
  Serious: Yes (Life-Threatening, Hospitalization)
  Sender: FDA-Public Use
  Company Number: None

PATIENT
  Age: 22 Year
  Sex: Female
  Weight: 81.6475 kg

DRUGS (1)
  1. APRI BARR LABORATORIES, INC. [Suspect]
     Indication: CONTRACEPTION
     Dosage: 1 TABLET DAILY PO
     Route: 048
     Dates: start: 20090701, end: 20090916

REACTIONS (4)
  - DECREASED ACTIVITY [None]
  - INFLUENZA LIKE ILLNESS [None]
  - PULMONARY THROMBOSIS [None]
  - THROMBOSIS [None]
